FAERS Safety Report 5130763-1 (Version None)
Quarter: 2006Q3

REPORT INFORMATION
  Report Type: 
  Country: None (occurrence: None)
  Receive Date: 20060829
  Receipt Date: 20060524
  Transmission Date: 20061208
  Serious: No
  Sender: FDA-Public Use
  Company Number: PHEH2006US06853

PATIENT
  Age: 73 Year
  Sex: Male

DRUGS (7)
  1. EXJADE [Suspect]
     Dosage: 1000 MG, QD, ORAL
     Route: 048
     Dates: start: 20060309
  2. LASIX [Suspect]
  3. PLAVIX [Concomitant]
  4. PRILOSEC [Concomitant]
  5. POTASSIUM CHLORIDE [Concomitant]
  6. LOPRESSOR [Concomitant]
  7. SYNTHROID [Concomitant]

REACTIONS (3)
  - DYSPNOEA [None]
  - POLLAKIURIA [None]
  - URINARY INCONTINENCE [None]
